FAERS Safety Report 7141619-7 (Version None)
Quarter: 2010Q4

REPORT INFORMATION
  Report Type: 
  Country: None (occurrence: None)
  Receive Date: 20101112
  Receipt Date: 20100723
  Transmission Date: 20110411
  Serious: Yes (Other)
  Sender: FDA-Public Use
  Company Number: SPV1-2010-01316

PATIENT
  Age: 84 Year
  Sex: Female
  Weight: 55.8 kg

DRUGS (7)
  1. AGRYLIN [Suspect]
     Indication: THROMBOCYTOSIS
     Dosage: 1 MG, 1X/DAY:QD, ORAL; 0.5 MG, 1X/DAY:QD, ORAL
     Route: 048
     Dates: start: 20100401, end: 20100101
  2. AGRYLIN [Suspect]
     Indication: THROMBOCYTOSIS
     Dosage: 1 MG, 1X/DAY:QD, ORAL; 0.5 MG, 1X/DAY:QD, ORAL
     Route: 048
     Dates: start: 20100101, end: 20100723
  3. LANOXIN (DIGOXIN) TABLET [Concomitant]
  4. TAMBOCOR (FLECAINIDE ACETATE) TABLET [Concomitant]
  5. AVAPRO [Concomitant]
  6. SIMVASTATIN [Concomitant]
  7. ASPIRIN [Concomitant]

REACTIONS (4)
  - ATRIAL FIBRILLATION [None]
  - CARDIAC FAILURE [None]
  - DYSPNOEA [None]
  - PALPITATIONS [None]
